FAERS Safety Report 9890304 (Version 1)
Quarter: 2014Q1

REPORT INFORMATION
  Report Type: Other
  Country: CL (occurrence: CL)
  Receive Date: 20140212
  Receipt Date: 20140212
  Transmission Date: 20141002
  Serious: Yes (Life-Threatening, Hospitalization)
  Sender: FDA-Public Use
  Company Number: CL-BRISTOL-MYERS SQUIBB COMPANY-20134805

PATIENT
  Age: 72 Year
  Sex: Female

DRUGS (1)
  1. METFORMIN HCL [Suspect]

REACTIONS (8)
  - Multi-organ failure [Recovering/Resolving]
  - Loss of consciousness [Recovering/Resolving]
  - Upper gastrointestinal haemorrhage [Recovering/Resolving]
  - Varices oesophageal [Recovering/Resolving]
  - Gastric ulcer [Recovering/Resolving]
  - Liver injury [Recovering/Resolving]
  - Portal hypertension [Recovering/Resolving]
  - Lactic acidosis [Recovering/Resolving]
